FAERS Safety Report 4556460-9 (Version None)
Quarter: 2005Q1

REPORT INFORMATION
  Report Type: 
  Country: None (occurrence: None)
  Receive Date: 20050114
  Receipt Date: 20050104
  Transmission Date: 20050727
  Serious: Yes (Hospitalization)
  Sender: FDA-Public Use
  Company Number: 2005EU000021

PATIENT
  Age: 37 Year
  Sex: Male

DRUGS (11)
  1. PROGRAF [Suspect]
     Indication: RENAL TRANSPLANT
     Dosage: 3.50 MG, BID, ORAL
     Route: 048
     Dates: start: 20040405
  2. TARKA [Suspect]
     Dosage: /D, ORAL
     Route: 048
     Dates: start: 20041013, end: 20041126
  3. CELLCEPT [Suspect]
     Indication: RENAL TRANSPLANT
     Dosage: 500.00 MG, BID, ORAL
     Route: 048
     Dates: start: 20040405
  4. PREDNISONE TAB [Suspect]
     Indication: RENAL TRANSPLANT
     Dosage: 35.00 MG, /D, ORAL
     Route: 048
  5. FUNGIZONE [Suspect]
     Dosage: 1.00 DF, TID, ORAL
     Route: 048
  6. BACTRIM DS [Suspect]
     Dosage: 1.00 DF, 3XWEEKLY, ORAL
     Route: 048
  7. PHOSPHALUGEL (ALUMINIUM PHOSPHATE GEL) [Concomitant]
  8. NEORECORMON (EPOETIN BETA) [Concomitant]
  9. ZOLPIDEM TARTRATE [Concomitant]
  10. VALACYCLOVIR HCL [Concomitant]
  11. SECTRAL ^AVENTIS^ (ACEBUTOLOL HYDROCHLORIDE) [Concomitant]

REACTIONS (3)
  - DISEASE RECURRENCE [None]
  - GUILLAIN-BARRE SYNDROME [None]
  - PLASMAPHERESIS [None]
